FAERS Safety Report 4542776-9 (Version None)
Quarter: 2004Q4

REPORT INFORMATION
  Report Type: 
  Country: None (occurrence: None)
  Receive Date: 20041231
  Receipt Date: 20041117
  Transmission Date: 20050328
  Serious: Yes (Hospitalization, Other)
  Sender: FDA-Public Use
  Company Number: 200413818JP

PATIENT
  Age: 1 Year
  Sex: Female
  Weight: 11.6 kg

DRUGS (9)
  1. CLAFORAN [Suspect]
     Indication: MENINGITIS HAEMOPHILUS
     Route: 042
     Dates: start: 20040202, end: 20040223
  2. PHENOBARBITAL TAB [Suspect]
     Indication: EPILEPSY
     Route: 048
     Dates: start: 20040213, end: 20040223
  3. PHENOBARBITAL TAB [Suspect]
     Indication: PROPHYLAXIS
     Route: 048
     Dates: start: 20040213, end: 20040223
  4. LASIX [Suspect]
     Indication: CARDIAC FAILURE
     Route: 048
     Dates: start: 20040216, end: 20040223
  5. ALDACTONE [Suspect]
     Indication: CARDIAC FAILURE
     Route: 048
     Dates: start: 20040216, end: 20040223
  6. PAPM/BP (PANIPENEM/BETAMIPRON) [Concomitant]
  7. CORTICOSTEROIDS [Concomitant]
  8. ANTITHROMBOTIC AGENTS [Concomitant]
  9. I.V. SOLUTIONS [Concomitant]

REACTIONS (6)
  - CARDIAC FAILURE [None]
  - DRUG ERUPTION [None]
  - ENDOCARDITIS [None]
  - RHABDOMYOLYSIS [None]
  - SKIN PAPILLOMA [None]
  - WHOLE BLOOD TRANSFUSION [None]
